FAERS Safety Report 6542988-9 (Version None)
Quarter: 2010Q1

REPORT INFORMATION
  Report Type: 
  Country: None (occurrence: None)
  Receive Date: 20100120
  Receipt Date: 20100112
  Transmission Date: 20100710
  Serious: Yes (Hospitalization, Disabling)
  Sender: FDA-Public Use
  Company Number: FR-ROCHE-671223

PATIENT
  Sex: Female
  Weight: 67 kg

DRUGS (6)
  1. METHOXY POLYETHYLENE GLYCOL-EPOETIN BETA [Suspect]
     Route: 058
     Dates: start: 20090618
  2. KARDEGIC [Concomitant]
     Indication: NEPHROTIC SYNDROME
     Route: 048
  3. APROVEL [Concomitant]
     Dosage: OTHER INDICATION: PROTEINURIA
     Route: 048
  4. LASILIX [Concomitant]
     Dosage: OTHER INDICATION: PROTEINURIA
     Route: 048
  5. TARDYFERON [Concomitant]
     Route: 048
  6. CRESTOR [Concomitant]
     Route: 048

REACTIONS (3)
  - ISCHAEMIC STROKE [None]
  - OEDEMA [None]
  - WEIGHT INCREASED [None]
